FAERS Safety Report 6430687-3 (Version None)
Quarter: 2009Q4

REPORT INFORMATION
  Report Type: 
  Country: None (occurrence: None)
  Receive Date: 20091104
  Receipt Date: 20091028
  Transmission Date: 20100525
  Serious: Yes (Hospitalization)
  Sender: FDA-Public Use
  Company Number: 2009011882

PATIENT
  Age: 22 Year
  Sex: Female

DRUGS (2)
  1. NUVIGIL [Suspect]
     Indication: NARCOLEPSY
     Dosage: 150 MG, (150 MG, 1 IN 1 D), ORAL; 250 MG (250 MG, 1 IN 1 D), ORAL
     Route: 048
     Dates: start: 20090901, end: 20090901
  2. NUVIGIL [Suspect]
     Indication: NARCOLEPSY
     Dosage: 150 MG, (150 MG, 1 IN 1 D), ORAL; 250 MG (250 MG, 1 IN 1 D), ORAL
     Route: 048
     Dates: start: 20090901, end: 20091001

REACTIONS (2)
  - CONTUSION [None]
  - RASH [None]
